FAERS Safety Report 8036952 (Version 2)
Quarter: 2012Q4

REPORT INFORMATION
  Report Type: 
  Country: US (occurrence: US)
  Receive Date: 20110715
  Receipt Date: 20121128
  Transmission Date: 20130627
  Serious: Yes (Hospitalization)
  Sender: FDA-Public Use
  Company Number: US-JNJFOC-20110703441

PATIENT
  Age: 44 Year
  Sex: Female

DRUGS (2)
  1. TRAMADOL [Suspect]
     Indication: PRODUCT USED FOR UNKNOWN INDICATION
     Dosage: 25 tablets
     Route: 048
     Dates: start: 20081026
  2. EXTRA STRENGTH TYLENOL [Suspect]
     Indication: HEADACHE
     Dosage: 4.5 to 6 grams for 4 days, then a single ingestion of 25 to 50 g
     Route: 048
     Dates: start: 20081023

REACTIONS (2)
  - Liver injury [Recovering/Resolving]
  - Intentional overdose [Recovering/Resolving]
